FAERS Safety Report 8429023-2 (Version None)
Quarter: 2012Q2

REPORT INFORMATION
  Report Type: 
  Country: None (occurrence: None)
  Receive Date: 20120612
  Receipt Date: 20120607
  Transmission Date: 20120825
  Serious: Yes (Other)
  Sender: FDA-Public Use
  Company Number: US-PFIZER INC-2012138084

PATIENT
  Sex: Female

DRUGS (2)
  1. MULTI-VITAMINS [Suspect]
     Dosage: UNK
  2. PREMARIN [Suspect]
     Dosage: 1.25 MG, UNK

REACTIONS (1)
  - COELIAC DISEASE [None]
